FAERS Safety Report 8180215-X (Version None)
Quarter: 2012Q1

REPORT INFORMATION
  Report Type: 
  Country: None (occurrence: None)
  Receive Date: 20120302
  Receipt Date: 20120217
  Transmission Date: 20120608
  Serious: Yes (Other)
  Sender: FDA-Public Use
  Company Number: US-MYLANLABS-2012S1003922

PATIENT
  Sex: Female

DRUGS (3)
  1. TOPIRAMATE [Suspect]
     Dosage: 400MG
     Route: 065
  2. CARBAMAZEPINE [Suspect]
     Dosage: 1000MG
     Route: 065
  3. PHENYTOIN [Suspect]
     Dosage: 500MG
     Route: 065

REACTIONS (5)
  - CONGENITAL CENTRAL NERVOUS SYSTEM ANOMALY [None]
  - PULMONARY MALFORMATION [None]
  - CONGENITAL ANOMALY [None]
  - MATERNAL EXPOSURE DURING PREGNANCY [None]
  - HEART DISEASE CONGENITAL [None]
